FAERS Safety Report 22611907 (Version 1)
Quarter: 2023Q2

REPORT INFORMATION
  Report Type: Spontaneous
  Country: FR (occurrence: FR)
  Receive Date: 20230616
  Receipt Date: 20230616
  Transmission Date: 20230721
  Serious: Yes (Other)
  Sender: FDA-Public Use
  Company Number: FR-CELLTRION INC.-2023FR012281

PATIENT

DRUGS (4)
  1. RITUXIMAB [Suspect]
     Active Substance: RITUXIMAB
     Indication: Kaposi sarcoma inflammatory cytokine syndrome
     Dosage: 375 MG/M2 EVERY WEEK FOR 4 WEEKS
     Route: 042
  2. RITUXIMAB [Suspect]
     Active Substance: RITUXIMAB
     Indication: Castleman^s disease
  3. ETOPOSIDE [Suspect]
     Active Substance: ETOPOSIDE
     Indication: Kaposi sarcoma inflammatory cytokine syndrome
     Dosage: 100 MG/M2 AFTER EACH RITUXIMAB INFUSION
  4. ETOPOSIDE [Suspect]
     Active Substance: ETOPOSIDE
     Indication: Castleman^s disease

REACTIONS (3)
  - Castleman^s disease [Unknown]
  - Drug effective for unapproved indication [Unknown]
  - Off label use [Unknown]
